FAERS Safety Report 8020432-2 (Version None)
Quarter: 2012Q1

REPORT INFORMATION
  Report Type: 
  Country: None (occurrence: None)
  Receive Date: 20120103
  Receipt Date: 20111221
  Transmission Date: 20120608
  Serious: Yes (Other)
  Sender: FDA-Public Use
  Company Number: JP-SANOFI-AVENTIS-2011SA084676

PATIENT
  Age: 65 Year
  Sex: Male

DRUGS (5)
  1. FAMOTIDINE [Suspect]
     Route: 048
  2. ZOLPIDEM [Suspect]
     Route: 048
     Dates: start: 20111109
  3. WARFARIN SODIUM [Suspect]
     Route: 065
  4. LIVALO [Suspect]
     Route: 065
  5. ASPIRIN [Suspect]
     Route: 065

REACTIONS (1)
  - SLEEP APNOEA SYNDROME [None]
